FAERS Safety Report 17961567 (Version 3)
Quarter: 2021Q2

REPORT INFORMATION
  Report Type: Spontaneous
  Country: US (occurrence: US)
  Receive Date: 20200630
  Receipt Date: 20210521
  Transmission Date: 20210717
  Serious: Yes (Other)
  Sender: FDA-Public Use
  Company Number: US-MYLANLABS-2020M1058105

PATIENT
  Sex: Female
  Weight: 68 kg

DRUGS (3)
  1. XULANE [Suspect]
     Active Substance: ETHINYL ESTRADIOL\NORELGESTROMIN
     Indication: CONTRACEPTION
     Dosage: 150/35 MICROGRAM QD EVERY WEEK
     Route: 062
     Dates: start: 20200508, end: 20200614
  2. PENICILLIN                         /00000901/ [Concomitant]
     Active Substance: PENICILLIN G
  3. AMOXICILLIN. [Concomitant]
     Active Substance: AMOXICILLIN

REACTIONS (5)
  - Application site discharge [Unknown]
  - Application site erythema [Recovered/Resolved]
  - Application site burn [Unknown]
  - Application site irritation [Not Recovered/Not Resolved]
  - Application site infection [Recovered/Resolved]

NARRATIVE: CASE EVENT DATE: 20200614
